FAERS Safety Report 13169870 (Version 1)
Quarter: 2017Q1

REPORT INFORMATION
  Report Type: Spontaneous
  Country: US (occurrence: US)
  Receive Date: 20170131
  Receipt Date: 20170131
  Transmission Date: 20170428
  Serious: Yes (Hospitalization)
  Sender: FDA-Public Use
  Company Number: US-ABBVIE-16K-163-1632403-00

PATIENT
  Age: 57 Year
  Sex: Male
  Weight: 83.99 kg

DRUGS (12)
  1. METHOTREXATE. [Suspect]
     Active Substance: METHOTREXATE
     Indication: PSORIASIS
     Dosage: 1/2 CC
     Route: 030
  2. VITAMIN D2 [Concomitant]
     Active Substance: ERGOCALCIFEROL
     Indication: VITAMIN SUPPLEMENTATION
     Dosage: FOR 10 WEEKS
  3. XELJANZ [Suspect]
     Active Substance: TOFACITINIB CITRATE
     Indication: PSORIATIC ARTHROPATHY
     Route: 048
     Dates: start: 2015, end: 20160403
  4. TAMSULOSIN [Concomitant]
     Active Substance: TAMSULOSIN
     Indication: PROSTATIC DISORDER
     Dosage: AT NIGHT
     Route: 048
     Dates: start: 2015
  5. SIMVASTATIN. [Concomitant]
     Active Substance: SIMVASTATIN
     Indication: BLOOD CHOLESTEROL
     Route: 048
     Dates: start: 2014
  6. ALLOPURINOL. [Concomitant]
     Active Substance: ALLOPURINOL
     Indication: GOUT
     Route: 048
     Dates: start: 2010
  7. FOLBEE [Concomitant]
     Active Substance: CYANOCOBALAMIN\FOLIC ACID\PYRIDOXINE HYDROCHLORIDE
     Indication: VITAMIN SUPPLEMENTATION
     Route: 048
     Dates: start: 2010
  8. LYRICA [Concomitant]
     Active Substance: PREGABALIN
     Indication: ARTHRITIS
     Route: 048
     Dates: start: 2009
  9. CELEBREX [Concomitant]
     Active Substance: CELECOXIB
     Indication: ARTHRITIS
     Route: 048
     Dates: start: 2009
  10. FOLIC ACID. [Concomitant]
     Active Substance: FOLIC ACID
     Indication: VITAMIN SUPPLEMENTATION
     Route: 048
     Dates: start: 2009
  11. HUMIRA [Suspect]
     Active Substance: ADALIMUMAB
     Indication: PSORIATIC ARTHROPATHY
     Route: 058
     Dates: start: 2009, end: 2015
  12. METHOTREXATE. [Suspect]
     Active Substance: METHOTREXATE
     Indication: PSORIATIC ARTHROPATHY
     Route: 030

REACTIONS (17)
  - Pyrexia [Recovered/Resolved]
  - Pain [Unknown]
  - Gout [Not Recovered/Not Resolved]
  - Nasopharyngitis [Recovered/Resolved]
  - Psoriasis [Unknown]
  - Herpes zoster [Unknown]
  - Gastrooesophageal reflux disease [Not Recovered/Not Resolved]
  - Arthritis [Unknown]
  - Sleep apnoea syndrome [Not Recovered/Not Resolved]
  - Psoriatic arthropathy [Not Recovered/Not Resolved]
  - Headache [Recovered/Resolved with Sequelae]
  - Fungal infection [Unknown]
  - Joint swelling [Unknown]
  - Drug effect incomplete [Unknown]
  - Swelling [Unknown]
  - Chills [Recovered/Resolved]
  - Rheumatoid arthritis [Not Recovered/Not Resolved]

NARRATIVE: CASE EVENT DATE: 2009
